FAERS Safety Report 16795219 (Version 1)
Quarter: 2019Q3

REPORT INFORMATION
  Report Type: Spontaneous
  Country: FR (occurrence: FR)
  Receive Date: 20190911
  Receipt Date: 20190911
  Transmission Date: 20191005
  Serious: Yes (Hospitalization)
  Sender: FDA-Public Use
  Company Number: FR-PFIZER INC-2019388293

PATIENT
  Age: 69 Year
  Sex: Male
  Weight: 87 kg

DRUGS (5)
  1. DALACINE [Suspect]
     Active Substance: CLINDAMYCIN
     Indication: PLEURAL INFECTION BACTERIAL
     Dosage: 6 DF, EVERY HOUR
     Route: 048
     Dates: start: 20190804, end: 20190814
  2. SPASFON [PHLOROGLUCINOL;TRIMETHYLPHLOROGLUCINOL] [Suspect]
     Active Substance: PHLOROGLUCINOL\1,3,5-TRIMETHOXYBENZENE
     Indication: GASTROINTESTINAL PAIN
     Dosage: 3 DF, 1X/DAY
     Route: 048
     Dates: start: 20190728, end: 20190814
  3. MIDAZOLAM [Suspect]
     Active Substance: MIDAZOLAM HYDROCHLORIDE
     Indication: SEDATION
     Dosage: 9 MG, 1X/DAY
     Route: 042
     Dates: start: 20190806, end: 20190816
  4. GABAPENTINE ARROW [Suspect]
     Active Substance: GABAPENTIN
     Dosage: 4 DF, 1X/DAY
     Route: 048
     Dates: start: 20190726, end: 20190814
  5. DALACINE [Suspect]
     Active Substance: CLINDAMYCIN
     Indication: PLEURAL INFECTION BACTERIAL
     Dosage: 6 DF, UNK
     Route: 042
     Dates: start: 20190731, end: 20190803

REACTIONS (3)
  - Rash maculo-papular [Recovering/Resolving]
  - Face oedema [Recovering/Resolving]
  - Overdose [Unknown]

NARRATIVE: CASE EVENT DATE: 20190813
